FAERS Safety Report 10075710 (Version 6)
Quarter: 2014Q2

REPORT INFORMATION
  Report Type: Report from Study
  Country: IE (occurrence: IE)
  Receive Date: 20140414
  Receipt Date: 20140624
  Transmission Date: 20141212
  Serious: Yes (Hospitalization)
  Sender: FDA-Public Use
  Company Number: IE-SA-2014SA044830

PATIENT
  Age: 21 Year
  Sex: Female

DRUGS (3)
  1. FABRAZYME [Suspect]
     Indication: FABRY^S DISEASE
     Route: 042
     Dates: start: 20111220
  2. AMITRIPTYLINE [Concomitant]
  3. GABAPENTIN [Concomitant]

REACTIONS (2)
  - Cerebrovascular accident [Not Recovered/Not Resolved]
  - Muscular weakness [Not Recovered/Not Resolved]
